FAERS Safety Report 20572302 (Version 1)
Quarter: 2022Q1

REPORT INFORMATION
  Report Type: Spontaneous
  Country: US (occurrence: None)
  Receive Date: 20220308
  Receipt Date: 20220308
  Transmission Date: 20220423
  Serious: Yes (Death)
  Sender: FDA-Public Use
  Company Number: None

PATIENT
  Age: 65 Year
  Sex: Male
  Weight: 133.8 kg

DRUGS (3)
  1. DEFINITY [Suspect]
     Active Substance: PERFLUTREN
     Indication: Contrast media deposition
     Dosage: FREQUENCY : ONCE;?
     Route: 040
     Dates: start: 20220307, end: 20220307
  2. HEPARIN [Concomitant]
     Active Substance: HEPARIN SODIUM
     Dates: start: 20220306, end: 20220306
  3. nitroglycerin drip [Concomitant]
     Dates: start: 20220306, end: 20220307

REACTIONS (4)
  - Respiratory distress [None]
  - Rash [None]
  - Cardiac arrest [None]
  - Infusion related reaction [None]

NARRATIVE: CASE EVENT DATE: 20220307
